FAERS Safety Report 24030467 (Version 6)
Quarter: 2025Q1

REPORT INFORMATION
  Report Type: Spontaneous
  Country: GB (occurrence: GB)
  Receive Date: 20240628
  Receipt Date: 20250226
  Transmission Date: 20250409
  Serious: Yes (Other)
  Sender: MYLAN
  Company Number: GB-TAKEDA-2023TUS033645

PATIENT
  Age: 73 Year
  Sex: Female

DRUGS (32)
  1. AMLODIPINE BESYLATE [Suspect]
     Active Substance: AMLODIPINE BESYLATE
     Indication: Hypertension
     Dosage: 5 MILLIGRAM, QD (ONCE A DAY)
  2. AMLODIPINE BESYLATE [Suspect]
     Active Substance: AMLODIPINE BESYLATE
     Dosage: 5 MILLIGRAM, QD (ONCE A DAY)
     Route: 065
  3. AMLODIPINE BESYLATE [Suspect]
     Active Substance: AMLODIPINE BESYLATE
     Dosage: 5 MILLIGRAM, QD (ONCE A DAY)
     Route: 065
  4. AMLODIPINE BESYLATE [Suspect]
     Active Substance: AMLODIPINE BESYLATE
     Dosage: 5 MILLIGRAM, QD (ONCE A DAY)
  5. ENTYVIO [Suspect]
     Active Substance: VEDOLIZUMAB
     Indication: Crohn^s disease
  6. ENTYVIO [Suspect]
     Active Substance: VEDOLIZUMAB
  7. ENTYVIO [Suspect]
     Active Substance: VEDOLIZUMAB
     Route: 042
  8. ENTYVIO [Suspect]
     Active Substance: VEDOLIZUMAB
     Route: 042
  9. ENTYVIO [Suspect]
     Active Substance: VEDOLIZUMAB
  10. ENTYVIO [Suspect]
     Active Substance: VEDOLIZUMAB
  11. ENTYVIO [Suspect]
     Active Substance: VEDOLIZUMAB
     Route: 042
  12. ENTYVIO [Suspect]
     Active Substance: VEDOLIZUMAB
     Route: 042
  13. ENTYVIO [Suspect]
     Active Substance: VEDOLIZUMAB
  14. ENTYVIO [Suspect]
     Active Substance: VEDOLIZUMAB
  15. ENTYVIO [Suspect]
     Active Substance: VEDOLIZUMAB
     Route: 042
  16. ENTYVIO [Suspect]
     Active Substance: VEDOLIZUMAB
     Route: 042
  17. ENTYVIO [Suspect]
     Active Substance: VEDOLIZUMAB
  18. ENTYVIO [Suspect]
     Active Substance: VEDOLIZUMAB
  19. ENTYVIO [Suspect]
     Active Substance: VEDOLIZUMAB
     Route: 042
  20. ENTYVIO [Suspect]
     Active Substance: VEDOLIZUMAB
     Route: 042
  21. ENTYVIO [Suspect]
     Active Substance: VEDOLIZUMAB
  22. ENTYVIO [Suspect]
     Active Substance: VEDOLIZUMAB
     Route: 042
  23. ENTYVIO [Suspect]
     Active Substance: VEDOLIZUMAB
  24. ENTYVIO [Suspect]
     Active Substance: VEDOLIZUMAB
     Route: 042
  25. INFLIXIMAB [Suspect]
     Active Substance: INFLIXIMAB
     Indication: Product used for unknown indication
  26. INFLIXIMAB [Suspect]
     Active Substance: INFLIXIMAB
     Route: 065
  27. INFLIXIMAB [Suspect]
     Active Substance: INFLIXIMAB
     Route: 065
  28. INFLIXIMAB [Suspect]
     Active Substance: INFLIXIMAB
  29. BUTYLSCOPOLAMINE BROMIDE [Concomitant]
     Active Substance: BUTYLSCOPOLAMINE BROMIDE
     Indication: Gastrointestinal pain
  30. BUTYLSCOPOLAMINE BROMIDE [Concomitant]
     Active Substance: BUTYLSCOPOLAMINE BROMIDE
     Route: 065
  31. BUTYLSCOPOLAMINE BROMIDE [Concomitant]
     Active Substance: BUTYLSCOPOLAMINE BROMIDE
     Route: 065
  32. BUTYLSCOPOLAMINE BROMIDE [Concomitant]
     Active Substance: BUTYLSCOPOLAMINE BROMIDE

REACTIONS (24)
  - Oesophagitis [Unknown]
  - Large intestine polyp [Unknown]
  - Helicobacter infection [Recovered/Resolved]
  - Blood pressure increased [Unknown]
  - Infusion site extravasation [Not Recovered/Not Resolved]
  - Glaucoma [Unknown]
  - Cataract [Unknown]
  - Cough [Unknown]
  - Vomiting [Recovered/Resolved]
  - Dizziness [Unknown]
  - Fatigue [Unknown]
  - Hiatus hernia [Unknown]
  - Neuralgia [Unknown]
  - Poor venous access [Unknown]
  - Oral blood blister [Unknown]
  - Hypertension [Unknown]
  - Diarrhoea [Recovered/Resolved]
  - Nasal congestion [Unknown]
  - Inappropriate schedule of product administration [Unknown]
  - Faecal calprotectin increased [Not Recovered/Not Resolved]
  - Gastrointestinal pain [Unknown]
  - Product distribution issue [Unknown]
  - Blood urea abnormal [Unknown]
  - Blood electrolytes abnormal [Unknown]

NARRATIVE: CASE EVENT DATE: 20231209
